FAERS Safety Report 8605143-4 (Version None)
Quarter: 2012Q3

REPORT INFORMATION
  Report Type: 
  Country: None (occurrence: None)
  Receive Date: 20120820
  Receipt Date: 20120810
  Transmission Date: 20120928
  Serious: Yes (Hospitalization, Other)
  Sender: FDA-Public Use
  Company Number: US-BAYER-2012-035852

PATIENT
  Age: 40 Year
  Sex: Female

DRUGS (14)
  1. VITAMIN D [Concomitant]
  2. CLARINEX [Concomitant]
     Dosage: 10 MG, UNK
  3. SYNTHROID [Concomitant]
     Dosage: 0.075 MG, UNK
  4. AMOXICILLIN [Concomitant]
     Dosage: 875 MG, UNK
  5. IRON [Concomitant]
  6. OXYCODONE HCL AND ACETAMINOPHEN [Concomitant]
     Dosage: 5-325 MG
  7. AMOXICILLIN AND CLAVULANATE POTASSIUM [Concomitant]
     Dosage: 875 MG, UNK
  8. MULTI-VITAMIN [Concomitant]
  9. YAZ [Suspect]
     Indication: MENSTRUATION IRREGULAR
     Dosage: UNK
     Dates: start: 20080801, end: 20081201
  10. CHERATUSSIN AC [Concomitant]
  11. AMOXICILLIN AND CLAVULANATE POTASSIUM [Concomitant]
     Dosage: 875 MG, UNK
  12. AMOXICILLIN [Concomitant]
     Indication: SINUSITIS
     Dosage: UNK UNK, BID
  13. LEVAQUIN [Concomitant]
     Dosage: 500 MG, UNK
  14. PREDNISONE TAB [Concomitant]
     Dosage: 20 MG, UNK

REACTIONS (4)
  - CHOLECYSTITIS CHRONIC [None]
  - PULMONARY EMBOLISM [None]
  - CHOLECYSTECTOMY [None]
  - DEEP VEIN THROMBOSIS [None]
